FAERS Safety Report 5510499-5 (Version None)
Quarter: 2007Q4

REPORT INFORMATION
  Report Type: 
  Country: None (occurrence: None)
  Receive Date: 20071108
  Receipt Date: 20071101
  Transmission Date: 20080405
  Serious: Yes (Hospitalization)
  Sender: FDA-Public Use
  Company Number: DE-ABBOTT-07P-062-0423404-00

PATIENT
  Sex: Female
  Weight: 72 kg

DRUGS (6)
  1. HUMIRA [Suspect]
     Indication: RHEUMATOID ARTHRITIS
     Route: 058
     Dates: start: 20050923, end: 20070703
  2. HUMIRA [Suspect]
     Route: 058
     Dates: start: 20070831, end: 20071009
  3. PREDNISOLONE [Suspect]
     Indication: RHEUMATOID ARTHRITIS
     Route: 048
     Dates: start: 20070201
  4. CALCICARE D3 [Concomitant]
     Indication: OSTEOPOROSIS
     Route: 048
     Dates: start: 20061109
  5. RAMIPRIL [Concomitant]
     Indication: HYPERTENSION
     Route: 048
     Dates: start: 20070201
  6. ALENDRONIC ACID [Concomitant]
     Indication: OSTEOPOROSIS
     Route: 048
     Dates: start: 20061109

REACTIONS (2)
  - CANDIDIASIS [None]
  - MEDICAL DEVICE COMPLICATION [None]
